FAERS Safety Report 9130120 (Version 1)
Quarter: 2013Q1

REPORT INFORMATION
  Report Type: Spontaneous
  Country: US (occurrence: US)
  Receive Date: 20130125
  Receipt Date: 20130125
  Transmission Date: 20140127
  Serious: Yes (Hospitalization, Other)
  Sender: FDA-Public Use
  Company Number: US-BAYER-2013-006935

PATIENT
  Age: 77 Year
  Sex: Male

DRUGS (4)
  1. ALENDRONATE SODIUM [Suspect]
     Indication: BONE DENSITY DECREASED
     Dosage: 70 MG, OW
  2. ALENDRONATE SODIUM [Suspect]
     Indication: BONE DENSITY DECREASED
     Dosage: 70 MG, QD
  3. ACETYLSALICYLIC ACID({=100 MG) [Suspect]
     Dosage: UNK UNK, QD
  4. OMEPRAZOLE [Concomitant]
     Dosage: UNK UNK, QD

REACTIONS (7)
  - Laryngeal ulceration [Recovering/Resolving]
  - Haemoptysis [Recovering/Resolving]
  - Dysphagia [Recovering/Resolving]
  - Cough [Recovering/Resolving]
  - Aspiration [Recovering/Resolving]
  - Accidental overdose [None]
  - Medication error [None]
